FAERS Safety Report 19095013 (Version 2)
Quarter: 2021Q2

REPORT INFORMATION
  Report Type: Spontaneous
  Country: US (occurrence: US)
  Receive Date: 20210405
  Receipt Date: 20210510
  Transmission Date: 20210717
  Serious: Yes (Other)
  Sender: FDA-Public Use
  Company Number: US-JNJFOC-20210400039

PATIENT
  Sex: Female

DRUGS (7)
  1. DEXAMETHASONE. [Concomitant]
     Active Substance: DEXAMETHASONE
  2. CARFILZOMIB [Concomitant]
     Active Substance: CARFILZOMIB
  3. POMALIDOMIDE [Concomitant]
     Active Substance: POMALIDOMIDE
  4. REVLIMID [Concomitant]
     Active Substance: LENALIDOMIDE
  5. CYTOXAN [Concomitant]
     Active Substance: CYCLOPHOSPHAMIDE
  6. DARZALEX [Suspect]
     Active Substance: DARATUMUMAB
     Indication: PLASMA CELL MYELOMA
     Route: 042
  7. IXAZOMIB [Concomitant]
     Active Substance: IXAZOMIB

REACTIONS (2)
  - Drug ineffective [Unknown]
  - Plasma cell myeloma [Unknown]
